FAERS Safety Report 13252156 (Version 1)
Quarter: 2017Q1

REPORT INFORMATION
  Report Type: Spontaneous
  Country: US (occurrence: US)
  Receive Date: 20170220
  Receipt Date: 20170220
  Transmission Date: 20170428
  Serious: Yes (Other)
  Sender: FDA-Public Use
  Company Number: US-GLAXOSMITHKLINE-US2017023074

PATIENT
  Sex: Female

DRUGS (10)
  1. METFORMIN [Concomitant]
     Active Substance: METFORMIN HYDROCHLORIDE
  2. ARNUITY [Concomitant]
  3. DIGOXIN. [Concomitant]
     Active Substance: DIGOXIN
  4. PROPRANOLOL [Concomitant]
     Active Substance: PROPRANOLOL HYDROCHLORIDE
  5. ANORO ELLIPTA [Suspect]
     Active Substance: UMECLIDINIUM BROMIDE\VILANTEROL TRIFENATATE
     Indication: CHRONIC OBSTRUCTIVE PULMONARY DISEASE
     Dosage: 1 PUFF(S), QD
     Route: 055
     Dates: start: 20170126
  6. NORVASC [Concomitant]
     Active Substance: AMLODIPINE BESYLATE
  7. VERAPAMIL [Concomitant]
     Active Substance: VERAPAMIL HYDROCHLORIDE
  8. ATORVASTATIN [Concomitant]
     Active Substance: ATORVASTATIN
  9. ISMO [Concomitant]
     Active Substance: ISOSORBIDE MONONITRATE
  10. INDERAL [Concomitant]
     Active Substance: PROPRANOLOL HYDROCHLORIDE

REACTIONS (2)
  - Choking [Unknown]
  - Blood glucose increased [Unknown]
